FAERS Safety Report 9019934 (Version 1)
Quarter: 2013Q1

REPORT INFORMATION
  Report Type: Spontaneous
  Country: None (occurrence: US)
  Receive Date: 20130119
  Receipt Date: 20130119
  Transmission Date: 20140127
  Serious: No
  Sender: FDA-Public Use
  Company Number: US-ALLERGAN-1212218US

PATIENT
  Age: 53 Year
  Sex: Female

DRUGS (4)
  1. BOTOX? [Suspect]
     Indication: PIRIFORMIS SYNDROME
     Dosage: UNK, SINGLE
     Route: 030
     Dates: start: 20120809, end: 20120809
  2. BIAXIN [Concomitant]
     Indication: LYME DISEASE
     Dosage: 500 MG, BID
     Route: 048
     Dates: start: 2007
  3. TOPAMAX [Concomitant]
     Indication: HEADACHE
     Dosage: 100 MG, BID
     Route: 048
     Dates: start: 2007
  4. PLAQUENIL [Concomitant]
     Indication: LYME DISEASE
     Dosage: UNK, QD
     Route: 048
     Dates: start: 2012

REACTIONS (6)
  - Off label use [Unknown]
  - Fatigue [Unknown]
  - Nausea [Recovering/Resolving]
  - Vertigo [Recovered/Resolved]
  - Headache [Unknown]
  - Feeling abnormal [Unknown]
